FAERS Safety Report 6469595-0 (Version None)
Quarter: 2009Q4

REPORT INFORMATION
  Report Type: 
  Country: None (occurrence: None)
  Receive Date: 20091203
  Receipt Date: 20091124
  Transmission Date: 20100525
  Serious: Yes (Hospitalization)
  Sender: FDA-Public Use
  Company Number: PL-ABBOTT-09P-129-0610503-00

PATIENT
  Sex: Female
  Weight: 86 kg

DRUGS (10)
  1. MERIDIA [Suspect]
     Indication: DRUG USE FOR UNKNOWN INDICATION
     Route: 048
     Dates: start: 20080901, end: 20081001
  2. MERIDIA [Suspect]
     Route: 048
     Dates: start: 20090101, end: 20090501
  3. MERIDIA [Suspect]
     Route: 048
     Dates: start: 20091005, end: 20091015
  4. METYPRED [Concomitant]
     Indication: DRUG USE FOR UNKNOWN INDICATION
  5. LETROX [Concomitant]
     Indication: DRUG USE FOR UNKNOWN INDICATION
  6. PRINIVIL [Concomitant]
     Indication: DRUG USE FOR UNKNOWN INDICATION
  7. CALPEROS [Concomitant]
     Indication: DRUG USE FOR UNKNOWN INDICATION
  8. ALFADIOL [Concomitant]
     Indication: DRUG USE FOR UNKNOWN INDICATION
  9. PRAZOL [Concomitant]
     Indication: DRUG USE FOR UNKNOWN INDICATION
  10. ATORIS [Concomitant]
     Indication: DRUG USE FOR UNKNOWN INDICATION

REACTIONS (5)
  - HEPATIC ENZYME INCREASED [None]
  - HYPOTHYROIDISM [None]
  - NEPHROTIC SYNDROME [None]
  - PROTEIN TOTAL DECREASED [None]
  - THROMBOSIS [None]
